FAERS Safety Report 18271808 (Version 2)
Quarter: 2023Q2

REPORT INFORMATION
  Report Type: Report from Study
  Country: LT (occurrence: LT)
  Receive Date: 20200916
  Receipt Date: 20230421
  Transmission Date: 20230722
  Serious: Yes (Other)
  Sender: FDA-Public Use
  Company Number: LT-NOVARTISPH-NVSC2020LT251310

PATIENT
  Age: 78 Year
  Sex: Female
  Weight: 88 kg

DRUGS (13)
  1. KISQALI [Suspect]
     Active Substance: RIBOCICLIB
     Indication: HER2 negative breast cancer
     Dosage: 600 MG
     Route: 048
     Dates: start: 20200703
  2. FEMARA [Suspect]
     Active Substance: LETROZOLE
     Indication: Hormone receptor positive HER2 negative breast cancer
     Dosage: 2.5 MG, QD
     Route: 048
     Dates: start: 20200703
  3. METFORMINUM [Concomitant]
     Indication: Diabetes mellitus
     Dosage: UNK
     Route: 065
     Dates: start: 20121003, end: 20200916
  4. INDAPAMIDE [Concomitant]
     Active Substance: INDAPAMIDE
     Indication: Hypertension
     Dosage: UNK
     Route: 065
     Dates: start: 20100427
  5. ACIDUM URSODEOXYCHOLICUM [Concomitant]
     Indication: Alanine aminotransferase increased
     Dosage: UNK
     Route: 065
     Dates: start: 20200908, end: 20200916
  6. ACIDUM URSODEOXYCHOLICUM [Concomitant]
     Indication: Aspartate aminotransferase increased
  7. ORNITHINE ASPARTATE [Concomitant]
     Active Substance: ORNITHINE ASPARTATE
     Indication: Aspartate aminotransferase increased
     Dosage: UNK
     Route: 065
     Dates: start: 20200908, end: 20200916
  8. ORNITHINE ASPARTATE [Concomitant]
     Active Substance: ORNITHINE ASPARTATE
     Indication: Alanine aminotransferase increased
  9. ESSENTIALE FORTE [Concomitant]
     Indication: Aspartate aminotransferase increased
     Dosage: UNK
     Route: 065
     Dates: start: 20200901, end: 20200916
  10. ESSENTIALE FORTE [Concomitant]
     Indication: Alanine aminotransferase increased
  11. ASPIRIN [Concomitant]
     Active Substance: ASPIRIN
     Indication: Venous thrombosis
     Dosage: UNK
     Route: 065
     Dates: start: 19750727, end: 20200916
  12. ASPIRIN [Concomitant]
     Active Substance: ASPIRIN
     Indication: Post thrombotic syndrome
  13. ALLOPURINOL [Concomitant]
     Active Substance: ALLOPURINOL
     Indication: Gout
     Dosage: UNK
     Route: 065
     Dates: start: 20181003, end: 20200916

REACTIONS (1)
  - Drug-induced liver injury [Recovered/Resolved]

NARRATIVE: CASE EVENT DATE: 20200914
